FAERS Safety Report 16966075 (Version 6)
Quarter: 2022Q3

REPORT INFORMATION
  Report Type: Spontaneous
  Country: US (occurrence: US)
  Receive Date: 20191028
  Receipt Date: 20220922
  Transmission Date: 20221027
  Serious: No
  Sender: FDA-Public Use
  Company Number: US-PFIZER INC-2019462602

PATIENT
  Age: 69 Year
  Sex: Female
  Weight: 92.99 kg

DRUGS (2)
  1. XELJANZ XR [Suspect]
     Active Substance: TOFACITINIB CITRATE
     Indication: Rheumatoid arthritis
     Dosage: 11 MG
     Dates: end: 201908
  2. XELJANZ XR [Suspect]
     Active Substance: TOFACITINIB CITRATE
     Dosage: 11 MG, 1X/DAY
     Route: 048
     Dates: start: 2017

REACTIONS (7)
  - Cough [Unknown]
  - Finger deformity [Unknown]
  - Diarrhoea [Unknown]
  - Alopecia [Unknown]
  - Contusion [Unknown]
  - Herpes zoster [Unknown]
  - Hypoacusis [Unknown]
